FAERS Safety Report 18546025 (Version 2)
Quarter: 2021Q1

REPORT INFORMATION
  Report Type: Report from Study
  Country: US (occurrence: US)
  Receive Date: 20201125
  Receipt Date: 20210112
  Transmission Date: 20210419
  Serious: No
  Sender: FDA-Public Use
  Company Number: NVSC2020US287613

PATIENT
  Age: 71 Year
  Sex: Male

DRUGS (2)
  1. VALSARTAN. [Suspect]
     Active Substance: VALSARTAN
     Indication: PRODUCT USED FOR UNKNOWN INDICATION
     Dosage: UNK
     Route: 065
     Dates: start: 20210105
  2. ENTRESTO [Suspect]
     Active Substance: SACUBITRIL\VALSARTAN
     Indication: PRODUCT USED FOR UNKNOWN INDICATION
     Dosage: UNK UNK, BID
     Route: 048
     Dates: start: 202002

REACTIONS (8)
  - Throat clearing [Unknown]
  - Polyuria [Unknown]
  - Weight increased [Unknown]
  - Frequent bowel movements [Unknown]
  - Delayed sleep phase [Unknown]
  - Fatigue [Unknown]
  - Pain in extremity [Unknown]
  - Anxiety [Unknown]
